FAERS Safety Report 18322819 (Version 1)
Quarter: 2020Q3

REPORT INFORMATION
  Report Type: Spontaneous
  Country: US (occurrence: US)
  Receive Date: 20200928
  Receipt Date: 20200928
  Transmission Date: 20201103
  Serious: Yes (Other)
  Sender: FDA-Public Use
  Company Number: US-AMNEAL PHARMACEUTICALS-2020-AMRX-02972

PATIENT
  Age: 54 Year

DRUGS (2)
  1. FULVESTRANT. [Suspect]
     Active Substance: FULVESTRANT
     Indication: HORMONE RECEPTOR POSITIVE BREAST CANCER
     Dosage: UNK
     Route: 065
  2. ALPELISIB [Suspect]
     Active Substance: ALPELISIB
     Indication: HORMONE RECEPTOR POSITIVE BREAST CANCER
     Dosage: UNK
     Route: 065

REACTIONS (1)
  - Hyperglycaemia [Unknown]
